FAERS Safety Report 15684881 (Version 4)
Quarter: 2018Q4

REPORT INFORMATION
  Report Type: Spontaneous
  Country: BR (occurrence: BR)
  Receive Date: 20181204
  Receipt Date: 20181220
  Transmission Date: 20190205
  Serious: Yes (Hospitalization, Other)
  Sender: FDA-Public Use
  Company Number: BR-PFIZER INC-2018492018

PATIENT
  Age: 75 Year
  Sex: Male

DRUGS (3)
  1. XALACOM [Suspect]
     Active Substance: LATANOPROST\TIMOLOL MALEATE
     Dosage: UNK
     Dates: start: 2013, end: 201810
  2. XALATAN [Suspect]
     Active Substance: LATANOPROST
     Indication: INTRAOCULAR PRESSURE INCREASED
     Dosage: 2 GTT, DAILY ( ONE DROP EACH EYE ONCE DAILY AT NIGHT)
     Route: 047
     Dates: start: 2010, end: 2013
  3. XALATAN [Suspect]
     Active Substance: LATANOPROST
     Dosage: 2 GTT, DAILY ( ONE DROP EACH EYE ONCE DAILY AT NIGHT)
     Route: 047
     Dates: start: 201811

REACTIONS (3)
  - Myocardial infarction [Unknown]
  - Drug ineffective [Recovered/Resolved]
  - Cataract [Unknown]

NARRATIVE: CASE EVENT DATE: 201802
